FAERS Safety Report 18929292 (Version 1)
Quarter: 2021Q1

REPORT INFORMATION
  Report Type: Other
  Country: CA (occurrence: CA)
  Receive Date: 20210223
  Receipt Date: 20210223
  Transmission Date: 20210420
  Serious: Yes (Hospitalization, Other)
  Sender: FDA-Public Use
  Company Number: CA-GLENMARK PHARMACEUTICALS-2021GMK052262

PATIENT

DRUGS (3)
  1. GABAPENTIN. [Suspect]
     Active Substance: GABAPENTIN
     Indication: PRODUCT USED FOR UNKNOWN INDICATION
     Dosage: UNK
     Route: 065
  2. BACLOFEN. [Suspect]
     Active Substance: BACLOFEN
     Indication: DYSTONIA
     Dosage: 5 MILLIGRAM, UNK
     Route: 048
  3. BACLOFEN. [Suspect]
     Active Substance: BACLOFEN
     Dosage: 5 MILLIGRAM, TID (3 EVERY 1 DAYS)
     Route: 048

REACTIONS (6)
  - Depressed level of consciousness [Recovered/Resolved]
  - Toxicity to various agents [Recovered/Resolved]
  - Bradycardia [Recovered/Resolved]
  - Bradypnoea [Recovered/Resolved]
  - Haemodynamic instability [Recovered/Resolved]
  - Condition aggravated [Recovered/Resolved]
